FAERS Safety Report 6439418-4 (Version None)
Quarter: 2009Q4

REPORT INFORMATION
  Report Type: 
  Country: None (occurrence: None)
  Receive Date: 20091111
  Receipt Date: 20091111
  Transmission Date: 20100525
  Serious: Yes (Other)
  Sender: FDA-Public Use
  Company Number: None

PATIENT
  Age: 77 Year
  Sex: Male
  Weight: 83.9154 kg

DRUGS (1)
  1. PRAVASTATIN [Suspect]
     Dosage: ONE TABLET BEDTIME PO
     Route: 048
     Dates: start: 20090715, end: 20091110

REACTIONS (2)
  - HIGH DENSITY LIPOPROTEIN DECREASED [None]
  - PRODUCT SUBSTITUTION ISSUE [None]
